FAERS Safety Report 26092860 (Version 1)
Quarter: 2025Q4

REPORT INFORMATION
  Report Type: Spontaneous
  Country: US (occurrence: None)
  Receive Date: 20251126
  Receipt Date: 20251126
  Transmission Date: 20260118
  Serious: Yes (Disabling)
  Sender: FDA-CTU
  Company Number: None

PATIENT
  Age: 75 Year
  Sex: Male
  Weight: 56.25 kg

DRUGS (5)
  1. LEVOFLOXACIN [Suspect]
     Active Substance: LEVOFLOXACIN
     Indication: Prostatitis
     Dosage: OTHER QUANTITY : 1 1 TABLET;?FREQUENCY : DAILY;?
     Route: 048
     Dates: start: 20240715, end: 20240725
  2. LOSARTAN [Concomitant]
     Active Substance: LOSARTAN
  3. PRAVASTATIN [Concomitant]
     Active Substance: PRAVASTATIN
  4. TYLENOL [Concomitant]
     Active Substance: ACETAMINOPHEN
  5. IBUPROFEN [Concomitant]
     Active Substance: IBUPROFEN

REACTIONS (3)
  - Anxiety [None]
  - Paranoia [None]
  - Social fear [None]

NARRATIVE: CASE EVENT DATE: 20240801
